FAERS Safety Report 8487537-3 (Version None)
Quarter: 2012Q3

REPORT INFORMATION
  Report Type: 
  Country: None (occurrence: None)
  Receive Date: 20120705
  Receipt Date: 20120621
  Transmission Date: 20120928
  Serious: Yes (Other)
  Sender: FDA-Public Use
  Company Number: PT-RANBAXY-2012RR-57611

PATIENT
  Age: 37 Year
  Sex: Female

DRUGS (7)
  1. VALPROATE SODIUM [Suspect]
     Dosage: 250 MG IN THE MORNING AND 500 MG AT NIGHT
     Route: 065
  2. VALPROATE SODIUM [Suspect]
     Indication: BIPOLAR I DISORDER
     Dosage: 250 MG, BID
     Route: 065
  3. VALPROATE SODIUM [Suspect]
     Dosage: 500 MG, BID
     Route: 065
  4. VALPROATE SODIUM [Suspect]
     Dosage: 250 MG, BID
     Route: 065
  5. IBUPROFEN [Concomitant]
     Indication: BIPOLAR I DISORDER
     Dosage: UNK
     Route: 065
  6. RISPERIDONE [Suspect]
     Indication: BIPOLAR I DISORDER
     Dosage: 3 MG, QD
     Route: 065
  7. QUETIAPINE [Concomitant]
     Indication: BIPOLAR I DISORDER
     Dosage: UNK
     Route: 065

REACTIONS (3)
  - DRUG INTERACTION [None]
  - HYPERAMMONAEMIC ENCEPHALOPATHY [None]
  - HYPERAMMONAEMIA [None]
